FAERS Safety Report 21747621 (Version 1)
Quarter: 2022Q4

REPORT INFORMATION
  Report Type: Spontaneous
  Country: US (occurrence: None)
  Receive Date: 20221216
  Receipt Date: 20221216
  Transmission Date: 20230112
  Serious: Yes (Death)
  Sender: FDA-Public Use
  Company Number: None

PATIENT
  Age: 24 Year
  Sex: Male
  Weight: 69.3 kg

DRUGS (1)
  1. BLEOMYCIN A5 [Suspect]
     Active Substance: BLEOMYCIN A5
     Indication: Testicular seminoma (pure) stage III
     Dosage: OTHER FREQUENCY : WEEKLY;?
     Route: 040
     Dates: start: 20220903, end: 20221031

REACTIONS (5)
  - Leukopenia [None]
  - Haemoglobin decreased [None]
  - Platelet count decreased [None]
  - Pneumomediastinum [None]
  - Acute respiratory failure [None]

NARRATIVE: CASE EVENT DATE: 20221102
